FAERS Safety Report 11658874 (Version 3)
Quarter: 2015Q4

REPORT INFORMATION
  Report Type: Spontaneous
  Country: GB (occurrence: GB)
  Receive Date: 20151026
  Receipt Date: 20151027
  Transmission Date: 20160304
  Serious: Yes (Disabling, Other)
  Sender: FDA-Public Use
  Company Number: PHHY2015GB124807

PATIENT
  Sex: Male

DRUGS (1)
  1. AMOXICILLIN. [Suspect]
     Active Substance: AMOXICILLIN
     Indication: MIDDLE EAR EFFUSION
     Route: 048
     Dates: start: 20150520, end: 20150522

REACTIONS (6)
  - Malaise [Unknown]
  - Deafness [Not Recovered/Not Resolved]
  - Counterfeit drug administered [Unknown]
  - Tinnitus [Unknown]
  - Feeling abnormal [Unknown]
  - Abdominal discomfort [Unknown]
